FAERS Safety Report 5443724-X (Version None)
Quarter: 2007Q3

REPORT INFORMATION
  Report Type: 
  Country: None (occurrence: None)
  Receive Date: 20070730
  Receipt Date: 20070316
  Transmission Date: 20080115
  Serious: Yes (Other)
  Sender: FDA-Public Use
  Company Number: 237127

PATIENT
  Age: 78 Year
  Sex: Female

DRUGS (1)
  1. RITUXAN [Suspect]
     Indication: SYSTEMIC LUPUS ERYTHEMATOSUS
     Dosage: 580 MG, INTRAVENOUS
     Route: 042
     Dates: start: 20061220

REACTIONS (1)
  - THROMBOCYTOPENIA [None]
